FAERS Safety Report 4591550-6 (Version None)
Quarter: 2005Q1

REPORT INFORMATION
  Report Type: 
  Country: None (occurrence: None)
  Receive Date: 20050222
  Receipt Date: 20050105
  Transmission Date: 20050727
  Serious: Yes (Life-Threatening)
  Sender: FDA-Public Use
  Company Number: 2005026614

PATIENT
  Age: 77 Year
  Sex: Female
  Weight: 61.2 kg

DRUGS (4)
  1. CELECOXIB (CELECOXIB) [Suspect]
     Indication: BREAST CANCER
     Dosage: 800 MG (200 MG, 2 IN 1 D), ORAL
     Route: 048
     Dates: start: 20040731, end: 20041219
  2. EXEMESTANE [Suspect]
     Indication: BREAST CANCER
     Dosage: 25 MG (UNKNOWN), UNKNOWN
     Route: 065
     Dates: start: 20040731
  3. ALENDRONATE SODIUM [Concomitant]
  4. ATORVASTATIN (ATORVASTATIN) [Concomitant]

REACTIONS (6)
  - DYSPNOEA [None]
  - FATIGUE [None]
  - FEELING ABNORMAL [None]
  - MUSCLE SPASMS [None]
  - MYOCARDIAL INFARCTION [None]
  - PALPITATIONS [None]
